FAERS Safety Report 18213206 (Version 1)
Quarter: 2020Q3

REPORT INFORMATION
  Report Type: Spontaneous
  Country: US (occurrence: US)
  Receive Date: 20200828
  Receipt Date: 20200828
  Transmission Date: 20201103
  Serious: Yes (Hospitalization)
  Sender: FDA-Public Use
  Company Number: None

PATIENT
  Age: 50 Year
  Sex: Male

DRUGS (10)
  1. METOPROL TAR [Concomitant]
  2. HUMIRA [Suspect]
     Active Substance: ADALIMUMAB
     Indication: CROHN^S DISEASE
     Route: 058
     Dates: start: 20191018
  3. MIDODRINE [Concomitant]
     Active Substance: MIDODRINE
  4. FEROSUL [Concomitant]
     Active Substance: FERROUS SULFATE
  5. ATORVASTATIN [Concomitant]
     Active Substance: ATORVASTATIN
  6. DOK [Concomitant]
     Active Substance: DOCUSATE SODIUM
  7. IBUPROFEN. [Concomitant]
     Active Substance: IBUPROFEN
  8. PRASUGREL. [Concomitant]
     Active Substance: PRASUGREL
  9. ONDANSETRON [Concomitant]
     Active Substance: ONDANSETRON
  10. PANTROPRAZOLE [Concomitant]

REACTIONS (1)
  - Therapy interrupted [None]

NARRATIVE: CASE EVENT DATE: 20200807
